FAERS Safety Report 8130537-3 (Version None)
Quarter: 2012Q1

REPORT INFORMATION
  Report Type: 
  Country: None (occurrence: None)
  Receive Date: 20120210
  Receipt Date: 20120206
  Transmission Date: 20120608
  Serious: Yes (Death, Life-Threatening, Hospitalization)
  Sender: FDA-Public Use
  Company Number: US-ASTRAZENECA-2012SE07887

PATIENT
  Age: 88 Year
  Sex: Male

DRUGS (5)
  1. LORAZEPAM [Concomitant]
  2. ASTHMA MEDICATIONS [Concomitant]
  3. DIABETES MEDICATIONS [Concomitant]
  4. PROZAC [Concomitant]
  5. SEROQUEL [Suspect]
     Indication: DEMENTIA
     Route: 048
     Dates: start: 20111101

REACTIONS (7)
  - OVERDOSE [None]
  - PNEUMONIA ASPIRATION [None]
  - DRUG PRESCRIBING ERROR [None]
  - DIABETES MELLITUS [None]
  - APALLIC SYNDROME [None]
  - CARDIAC FAILURE [None]
  - COMA [None]
